FAERS Safety Report 9723412 (Version 2)
Quarter: 2013Q4

REPORT INFORMATION
  Report Type: Report from Study
  Country: IT (occurrence: IT)
  Receive Date: 20131202
  Receipt Date: 20131212
  Transmission Date: 20140711
  Serious: Yes (Other)
  Sender: FDA-Public Use
  Company Number: IT-CELGENEUS-083-20785-13113096

PATIENT
  Age: 71 Year
  Sex: Female
  Weight: 90 kg

DRUGS (18)
  1. THALIDOMIDE [Suspect]
     Indication: PLASMA CELL MYELOMA
     Route: 048
     Dates: start: 200708, end: 200712
  2. THALIDOMIDE [Suspect]
     Route: 048
     Dates: start: 200809, end: 200811
  3. VELCADE [Suspect]
     Indication: PLASMA CELL MYELOMA
     Route: 058
     Dates: start: 20110422, end: 20110512
  4. VELCADE [Suspect]
     Route: 058
     Dates: start: 20111206, end: 20111206
  5. VELCADE [Suspect]
     Route: 058
     Dates: end: 20120723
  6. MELPHALAN [Suspect]
     Indication: PLASMA CELL MYELOMA
     Route: 065
     Dates: start: 200801, end: 200801
  7. MELPHALAN [Suspect]
     Dosage: 16 MILLIGRAM
     Route: 048
     Dates: start: 20110422, end: 20120723
  8. MELPHALAN [Suspect]
     Dosage: 16 MILLIGRAM
     Route: 048
     Dates: start: 20111206, end: 20111209
  9. PREDNISONE [Suspect]
     Indication: PLASMA CELL MYELOMA
     Route: 048
     Dates: start: 20110429, end: 20110609
  10. PREDNISONE [Suspect]
     Route: 048
     Dates: start: 20111206, end: 20111209
  11. CYCLOPHOSPHAMIDE [Suspect]
     Indication: PLASMA CELL MYELOMA
     Route: 065
     Dates: start: 200801, end: 200801
  12. DEXAMETHASONE [Suspect]
     Indication: PLASMA CELL MYELOMA
     Route: 065
     Dates: start: 200708, end: 200712
  13. DEXAMETHASONE [Suspect]
     Route: 065
     Dates: start: 200809, end: 200811
  14. DEXAMETHASONE [Suspect]
     Route: 065
     Dates: start: 20130902
  15. DEXAMETHASONE [Suspect]
     Route: 065
     Dates: start: 20131003, end: 20131012
  16. TELMISARTAN [Concomitant]
     Indication: HYPERTENSION
     Dosage: 40 MILLIGRAM
     Route: 065
  17. CEFTRIAXONE [Concomitant]
     Indication: BRONCHITIS
     Dosage: 2 GRAM
     Route: 065
     Dates: start: 20131002, end: 20131010
  18. ZOLEDRONIC ACID [Concomitant]
     Indication: HYPERCALCAEMIA
     Dosage: 2 GRAM
     Route: 065
     Dates: start: 20131002, end: 20131003

REACTIONS (1)
  - Myelodysplastic syndrome [Not Recovered/Not Resolved]
